FAERS Safety Report 15296262 (Version 1)
Quarter: 2018Q3

REPORT INFORMATION
  Report Type: Spontaneous
  Country: CA (occurrence: CA)
  Receive Date: 20180820
  Receipt Date: 20180820
  Transmission Date: 20181010
  Serious: Yes (Other)
  Sender: FDA-Public Use
  Company Number: CA-TEVA-2018-CA-944329

PATIENT
  Age: 48 Year
  Sex: Female

DRUGS (1)
  1. TEVA?LAMOTRIGINE [Suspect]
     Active Substance: LAMOTRIGINE
     Indication: EPILEPSY
     Dosage: 200  DAILY;
     Route: 048

REACTIONS (3)
  - Epileptic aura [Recovering/Resolving]
  - Product quality issue [Unknown]
  - Drug ineffective [Unknown]

NARRATIVE: CASE EVENT DATE: 20180807
